FAERS Safety Report 9356195 (Version 1)
Quarter: 2013Q2

REPORT INFORMATION
  Report Type: Spontaneous
  Country: IT (occurrence: IT)
  Receive Date: 20130619
  Receipt Date: 20130619
  Transmission Date: 20140414
  Serious: Yes (Death)
  Sender: FDA-Public Use
  Company Number: IT-PFIZER INC-2013176011

PATIENT
  Sex: 0

DRUGS (1)
  1. LINEZOLID [Suspect]
     Dosage: UNK
     Route: 065

REACTIONS (1)
  - Death [Fatal]
